FAERS Safety Report 8563445-4 (Version None)
Quarter: 2012Q3

REPORT INFORMATION
  Report Type: 
  Country: None (occurrence: None)
  Receive Date: 20120802
  Receipt Date: 20120727
  Transmission Date: 20120928
  Serious: Yes (Hospitalization, Other)
  Sender: FDA-Public Use
  Company Number: PHEH2012US014219

PATIENT
  Sex: Female

DRUGS (9)
  1. PREMARIN [Concomitant]
     Dosage: 0.062 MG, UNK
  2. MULTI-VITAMINS [Concomitant]
     Dosage: UNK
  3. CALCIUM [Concomitant]
     Dosage: UNK
  4. SIMVASTATIN [Concomitant]
     Dosage: UNK
  5. DIOVAN HCT [Concomitant]
     Dosage: UNK
  6. LEVOTHYROXINE SODIUM [Concomitant]
     Dosage: UNK
  7. METOPROLOL TARTRATE [Suspect]
     Dosage: UNK UKN, UNK
  8. CYMBALTA [Suspect]
     Dosage: UNK
  9. VITAMIN D [Concomitant]
     Dosage: UNK

REACTIONS (4)
  - INTRACRANIAL ANEURYSM [None]
  - PANCREATITIS [None]
  - CEREBROVASCULAR ACCIDENT [None]
  - ARTHRALGIA [None]
